FAERS Safety Report 21868044 (Version 3)
Quarter: 2023Q2

REPORT INFORMATION
  Report Type: Spontaneous
  Country: SK (occurrence: SK)
  Receive Date: 20230116
  Receipt Date: 20230609
  Transmission Date: 20230722
  Serious: Yes (Hospitalization)
  Sender: FDA-Public Use
  Company Number: SK-TAKEDA-2023TUS003780

PATIENT
  Age: 65 Year
  Sex: Male

DRUGS (5)
  1. ADCETRIS [Suspect]
     Active Substance: BRENTUXIMAB VEDOTIN
     Indication: Hodgkin^s disease refractory
     Dosage: 1.8 MILLIGRAM/KILOGRAM
     Route: 065
     Dates: end: 20221104
  2. ADCETRIS [Suspect]
     Active Substance: BRENTUXIMAB VEDOTIN
     Indication: Hodgkin^s disease nodular sclerosis
     Dosage: 150 MILLIGRAM
     Route: 042
     Dates: start: 20220627, end: 20221104
  3. NADROPARIN CALCIUM [Concomitant]
     Active Substance: NADROPARIN CALCIUM
     Indication: Prophylaxis
     Dosage: 0.4 MILLILITER, QD
     Route: 058
  4. BICALUTAMIDE [Concomitant]
     Active Substance: BICALUTAMIDE
     Indication: Prostate cancer
     Dosage: 150 MILLIGRAM, QD
     Route: 048
     Dates: end: 20221208
  5. ALLOPURINOL [Concomitant]
     Active Substance: ALLOPURINOL
     Indication: Calculus urinary
     Dosage: 300 MILLIGRAM, QD
     Route: 065

REACTIONS (4)
  - Dermatitis allergic [Recovered/Resolved]
  - Eczema [Recovered/Resolved]
  - Tremor [Recovered/Resolved]
  - Pruritus [Recovered/Resolved]

NARRATIVE: CASE EVENT DATE: 20221114
